FAERS Safety Report 11124088 (Version 1)
Quarter: 2015Q2

REPORT INFORMATION
  Report Type: Spontaneous
  Country: US (occurrence: None)
  Receive Date: 20150518
  Receipt Date: 20150518
  Transmission Date: 20150821
  Serious: Yes (Life-Threatening, Hospitalization, Other)
  Sender: FDA-Public Use
  Company Number: ADR-2015-00945

PATIENT
  Age: 55 Year
  Sex: Male

DRUGS (1)
  1. BACLOFEN INTRATHECAL [Suspect]
     Active Substance: BACLOFEN
     Indication: MUSCLE SPASTICITY

REACTIONS (10)
  - Post procedural complication [None]
  - Musculoskeletal stiffness [None]
  - Weight bearing difficulty [None]
  - Paralysis [None]
  - Sepsis [None]
  - Device related infection [None]
  - Drug withdrawal syndrome [None]
  - Quality of life decreased [None]
  - Pruritus [None]
  - Urinary tract infection [None]

NARRATIVE: CASE EVENT DATE: 20140710
